FAERS Safety Report 17904581 (Version 1)
Quarter: 2020Q2

REPORT INFORMATION
  Report Type: Spontaneous
  Country: GB (occurrence: GB)
  Receive Date: 20200617
  Receipt Date: 20200617
  Transmission Date: 20200714
  Serious: Yes (Other)
  Sender: FDA-Public Use
  Company Number: GB-TEVA-2020-GB-1504002

PATIENT
  Age: 6 Decade
  Sex: Male

DRUGS (6)
  1. BUPROPION. [Suspect]
     Active Substance: BUPROPION
     Indication: MAJOR DEPRESSION
     Route: 065
  2. FLUVOXAMINE [Suspect]
     Active Substance: FLUVOXAMINE
     Indication: MAJOR DEPRESSION
     Route: 065
  3. VENLAFAXINE [Suspect]
     Active Substance: VENLAFAXINE HYDROCHLORIDE
     Indication: MAJOR DEPRESSION
     Dosage: 75 MILLIGRAM DAILY; WAS RESTARTED ON VENLAFAXINE DURING SECOND DEPRESSIVE EPISODE
     Route: 065
  4. NORTRIPTYLINE [Suspect]
     Active Substance: NORTRIPTYLINE
     Indication: MAJOR DEPRESSION
     Route: 065
  5. AGOMELATINE [Suspect]
     Active Substance: AGOMELATINE
     Indication: MAJOR DEPRESSION
     Route: 065
  6. MIRTAZAPINE. [Suspect]
     Active Substance: MIRTAZAPINE
     Indication: MAJOR DEPRESSION
     Dosage: 30 MILLIGRAM DAILY; WAS RESTARTED ON MIRTAZAPINE DURING THIRD DEPRESSIVE EPISODE
     Route: 065

REACTIONS (2)
  - Hyponatraemia [Recovered/Resolved]
  - Inappropriate antidiuretic hormone secretion [Recovered/Resolved]
